FAERS Safety Report 4685451-2 (Version None)
Quarter: 2005Q2

REPORT INFORMATION
  Report Type: 
  Country: None (occurrence: None)
  Receive Date: 20050603
  Receipt Date: 20050523
  Transmission Date: 20051028
  Serious: Yes (Other)
  Sender: FDA-Public Use
  Company Number: ACC000047

PATIENT
  Age: 79 Year
  Sex: Female

DRUGS (1)
  1. MILRINONE (MILRINONE) [Suspect]
     Indication: HAEMODIALYSIS

REACTIONS (3)
  - ATRIAL FIBRILLATION [None]
  - DRUG LEVEL ABOVE THERAPEUTIC [None]
  - HYPOTENSION [None]
